FAERS Safety Report 20537866 (Version 1)
Quarter: 2022Q1

REPORT INFORMATION
  Report Type: Spontaneous
  Country: US (occurrence: US)
  Receive Date: 20220302
  Receipt Date: 20220302
  Transmission Date: 20220423
  Serious: No
  Sender: FDA-Public Use
  Company Number: US-PFIZER INC-202200277442

PATIENT
  Age: 77 Year
  Sex: Female
  Weight: 67.13 kg

DRUGS (4)
  1. LATANOPROST [Suspect]
     Active Substance: LATANOPROST
     Indication: Glaucoma
     Dosage: 1 DROP IN EACH EYE IN THE EVENING
     Route: 047
     Dates: start: 202112
  2. LATANOPROST [Suspect]
     Active Substance: LATANOPROST
     Dosage: UNK
     Dates: end: 202202
  3. IRON [Concomitant]
     Active Substance: IRON
     Indication: Iron deficiency anaemia
     Dosage: UNK
  4. OMEPRAZOLE [Concomitant]
     Active Substance: OMEPRAZOLE
     Dosage: UNK

REACTIONS (5)
  - Periorbital swelling [Recovering/Resolving]
  - Palpitations [Recovered/Resolved]
  - Eructation [Unknown]
  - Dyspnoea [Recovering/Resolving]
  - Growth of eyelashes [Unknown]

NARRATIVE: CASE EVENT DATE: 20220101
